FAERS Safety Report 12709048 (Version 1)
Quarter: 2016Q3

REPORT INFORMATION
  Report Type: Spontaneous
  Country: US (occurrence: US)
  Receive Date: 20160901
  Receipt Date: 20160901
  Transmission Date: 20161109
  Serious: No
  Sender: FDA-Public Use
  Company Number: US-JAZZ-2016-US-008472

PATIENT
  Sex: Male

DRUGS (29)
  1. XYREM [Suspect]
     Active Substance: SODIUM OXYBATE
     Indication: NARCOLEPSY
     Dosage: 2.25 G, BID
     Route: 048
     Dates: start: 200312, end: 200401
  2. NUVIGIL [Concomitant]
     Active Substance: ARMODAFINIL
  3. HYDROCODONE POLISTIREX AND CHLORPHENIR [Concomitant]
  4. DETROL LA [Concomitant]
     Active Substance: TOLTERODINE TARTRATE
  5. VICTOZA [Concomitant]
     Active Substance: LIRAGLUTIDE
  6. DETROL [Concomitant]
     Active Substance: TOLTERODINE TARTRATE
  7. DIOVAN [Concomitant]
     Active Substance: VALSARTAN
  8. VITAMIN D3 [Concomitant]
     Active Substance: CHOLECALCIFEROL
  9. TRILIPIX [Concomitant]
     Active Substance: FENOFIBRIC ACID
  10. METFORMIN HCL [Concomitant]
     Active Substance: METFORMIN HYDROCHLORIDE
  11. XYREM [Suspect]
     Active Substance: SODIUM OXYBATE
     Indication: CATAPLEXY
     Dosage: DOSE ADJUSTMENTS
     Route: 048
  12. FLOMAX [Concomitant]
     Active Substance: TAMSULOSIN HYDROCHLORIDE
  13. FLOMAX [Concomitant]
     Active Substance: TAMSULOSIN HYDROCHLORIDE
  14. PLAVIX [Concomitant]
     Active Substance: CLOPIDOGREL BISULFATE
  15. SYNTHROID [Concomitant]
     Active Substance: LEVOTHYROXINE SODIUM
  16. DIAZEPAM. [Concomitant]
     Active Substance: DIAZEPAM
  17. GLIPIZIDE. [Concomitant]
     Active Substance: GLIPIZIDE
  18. PROVIGIL [Concomitant]
     Active Substance: MODAFINIL
  19. VICODIN [Concomitant]
     Active Substance: ACETAMINOPHEN\HYDROCODONE BITARTRATE
  20. HYOSCYAMINE. [Concomitant]
     Active Substance: HYOSCYAMINE
  21. NORCO [Concomitant]
     Active Substance: ACETAMINOPHEN\HYDROCODONE BITARTRATE
  22. DIAZEPAM. [Concomitant]
     Active Substance: DIAZEPAM
  23. AXIRON [Concomitant]
     Active Substance: TESTOSTERONE
  24. LORAZEPAM. [Concomitant]
     Active Substance: LORAZEPAM
  25. PERCOCET [Concomitant]
     Active Substance: ACETAMINOPHEN\OXYCODONE HYDROCHLORIDE
  26. XYREM [Suspect]
     Active Substance: SODIUM OXYBATE
     Dosage: 4.5 G, BID
     Route: 048
     Dates: start: 201009
  27. CRESTOR [Concomitant]
     Active Substance: ROSUVASTATIN CALCIUM
  28. METOPROLOL. [Concomitant]
     Active Substance: METOPROLOL
  29. PROZAC [Concomitant]
     Active Substance: FLUOXETINE HYDROCHLORIDE

REACTIONS (1)
  - Diarrhoea [Recovering/Resolving]
